FAERS Safety Report 20615172 (Version 1)
Quarter: 2022Q1

REPORT INFORMATION
  Report Type: Spontaneous
  Country: JP (occurrence: JP)
  Receive Date: 20220321
  Receipt Date: 20220321
  Transmission Date: 20220423
  Serious: Yes (Other)
  Sender: FDA-Public Use
  Company Number: JP-ABBVIE-22K-087-4322400-00

PATIENT
  Age: 71 Year
  Sex: Female

DRUGS (2)
  1. PAXLOVID [Suspect]
     Active Substance: NIRMATRELVIR\RITONAVIR
     Indication: Product used for unknown indication
     Route: 048
     Dates: start: 20220309
  2. PAXLOVID [Suspect]
     Active Substance: NIRMATRELVIR\RITONAVIR
     Indication: Product used for unknown indication
     Route: 048
     Dates: start: 20220309

REACTIONS (2)
  - Conjunctival haemorrhage [Unknown]
  - Faeces soft [Unknown]

NARRATIVE: CASE EVENT DATE: 20220309
